FAERS Safety Report 8903319 (Version 1)
Quarter: 2012Q4

REPORT INFORMATION
  Report Type: 
  Country: US (occurrence: US)
  Receive Date: 20121113
  Receipt Date: 20121113
  Transmission Date: 20130627
  Serious: No
  Sender: FDA-Public Use
  Company Number: US-ASTRAZENECA-2012SE82136

PATIENT
  Age: 30 Year
  Sex: Female
  Weight: 86.2 kg

DRUGS (2)
  1. SYMBICORT [Suspect]
     Indication: ASTHMA
     Dosage: 160/4.5 MCG UNKNOWN FREQUENCY
     Route: 055
     Dates: start: 2008, end: 20121014
  2. SYMBICORT [Suspect]
     Indication: ASTHMA
     Dosage: 160/4.5 MCG AS REQUIRED
     Route: 055
     Dates: start: 2008, end: 20121014

REACTIONS (3)
  - Speech disorder [Unknown]
  - Intentional drug misuse [Unknown]
  - Drug dose omission [Unknown]
